FAERS Safety Report 21844332 (Version 1)
Quarter: 2023Q1

REPORT INFORMATION
  Report Type: Spontaneous
  Country: BE (occurrence: BE)
  Receive Date: 20230110
  Receipt Date: 20230110
  Transmission Date: 20230418
  Serious: Yes (Disabling, Other)
  Sender: FDA-Public Use
  Company Number: None

PATIENT
  Age: 68 Year
  Sex: Male
  Weight: 52 kg

DRUGS (13)
  1. MEKINIST [Suspect]
     Active Substance: TRAMETINIB DIMETHYL SULFOXIDE
     Indication: Malignant melanoma
     Dosage: 1 DOSAGE FORM, QD (DRUG WITHDRAWN ON 17 JUN 2021 READMINISTRATION WITH A LOWER DOSE 1.5 MG/DAY ON 30
     Route: 048
     Dates: start: 20210522, end: 20210617
  2. TAFINLAR [Suspect]
     Active Substance: DABRAFENIB MESYLATE
     Indication: Malignant melanoma
     Dosage: 4 DOSAGE FORM, QD (2 CAPS. 2X/DAYDRUG WTIHDRAWN ON 17 JUN 2021 READMINISTRATION ON 13 JUL 2021 AT O
     Route: 048
     Dates: start: 20210522, end: 20210617
  3. SILODOSIN [Concomitant]
     Active Substance: SILODOSIN
     Indication: Benign prostatic hyperplasia
     Dosage: 1 DOSAGE FORM, QD (CHRONIC TREATMENT)
     Route: 048
  4. MOXONIDINE EG [Concomitant]
     Indication: Hypertension
     Dosage: 1 DOSAGE FORM, QD (CHRONIC TREATMENT)
     Route: 048
  5. CLOPIDOGREL [Concomitant]
     Active Substance: CLOPIDOGREL BISULFATE
     Indication: Product used for unknown indication
     Dosage: 1 DOSAGE FORM, QD (TRAITEMENT CHRONIQUE)
     Route: 048
  6. AMLODIPINE BESYLATE [Concomitant]
     Active Substance: AMLODIPINE BESYLATE
     Indication: Hypertension
     Dosage: 1 DOSAGE FORM, QD (TRAITEMENT CHRONIQUE)
     Route: 048
  7. HYDROCHLOROTHIAZIDE\NEBIVOLOL HYDROCHLORIDE [Concomitant]
     Active Substance: HYDROCHLOROTHIAZIDE\NEBIVOLOL HYDROCHLORIDE
     Indication: Hypertension
     Dosage: 1 DOSAGE FORM, QD (CHRONIC TREATMENT)
     Route: 048
  8. HYDROCHLOROTHIAZIDE\NEBIVOLOL HYDROCHLORIDE [Concomitant]
     Active Substance: HYDROCHLOROTHIAZIDE\NEBIVOLOL HYDROCHLORIDE
     Indication: Ischaemic cardiomyopathy
  9. LORAZEPAM EG [Concomitant]
     Indication: Insomnia
     Dosage: 1 DOSAGE FORM, QD (CHRONIC TREATMENT)
     Route: 048
  10. PANTOMED [Concomitant]
     Indication: Product used for unknown indication
     Dosage: 1 DOSAGE FORM, QD (CHRONIC TREATMENT)
     Route: 048
  11. FURADANTINE MC [Concomitant]
     Indication: Urinary tract infection
     Dosage: 1 DOSAGE FORM, QD (TRAITEMENT CHRONIQUE)
     Route: 048
  12. ATORVASTATIN [Concomitant]
     Active Substance: ATORVASTATIN
     Indication: Hypercholesterolaemia
     Dosage: 1 DOSAGE FORM, QD (CHRONIC TREATMENT)
     Route: 048
  13. ASPIRIN [Concomitant]
     Active Substance: ASPIRIN
     Indication: Prophylaxis
     Dosage: 1 DOSAGE FORM, QD (TRAITEMENT CHRONIQUE)
     Route: 048

REACTIONS (3)
  - Visual acuity reduced [Recovering/Resolving]
  - Vitreous floaters [Recovering/Resolving]
  - Central serous chorioretinopathy [Recovering/Resolving]

NARRATIVE: CASE EVENT DATE: 20210611
